FAERS Safety Report 6422184-6 (Version None)
Quarter: 2009Q4

REPORT INFORMATION
  Report Type: 
  Country: None (occurrence: None)
  Receive Date: 20091030
  Receipt Date: 20091019
  Transmission Date: 20100525
  Serious: Yes (Other)
  Sender: FDA-Public Use
  Company Number: PHHY2009FR36437

PATIENT
  Sex: Male
  Weight: 92 kg

DRUGS (4)
  1. EXJADE [Suspect]
     Indication: MYELODYSPLASTIC SYNDROME
     Dosage: UNK
     Route: 048
     Dates: start: 20090701
  2. EXJADE [Suspect]
     Indication: ACUTE MYELOID LEUKAEMIA
  3. VIDAZA [Concomitant]
     Indication: MYELODYSPLASTIC SYNDROME
     Dosage: UNK
  4. CORTICOSTEROIDS [Concomitant]

REACTIONS (4)
  - RASH ERYTHEMATOUS [None]
  - RENAL FAILURE [None]
  - SKIN NECROSIS [None]
  - TOXIC SKIN ERUPTION [None]
